FAERS Safety Report 6807034-8 (Version None)
Quarter: 2010Q2

REPORT INFORMATION
  Report Type: 
  Country: None (occurrence: None)
  Receive Date: 20100629
  Receipt Date: 20090204
  Transmission Date: 20101027
  Serious: No
  Sender: FDA-Public Use
  Company Number: US-PFIZER INC-2008049396

PATIENT
  Sex: Male
  Weight: 95.25 kg

DRUGS (10)
  1. VIAGRA [Suspect]
     Indication: ERECTILE DYSFUNCTION
     Dosage: 25 MG, UNK
  2. VYTORIN [Concomitant]
  3. HALOPERIDOL [Concomitant]
  4. SAW PALMETTO [Concomitant]
  5. ACETYLSALICYLIC ACID [Concomitant]
  6. DEPAKOTE [Concomitant]
  7. OMEPRAZOLE [Concomitant]
  8. TOPROL-XL [Concomitant]
  9. CENTRUM SILVER [Concomitant]
  10. VITAMIN E [Concomitant]

REACTIONS (3)
  - DRUG INEFFECTIVE [None]
  - HEADACHE [None]
  - NERVOUSNESS [None]
